FAERS Safety Report 15221552 (Version 2)
Quarter: 2018Q3

REPORT INFORMATION
  Report Type: Spontaneous
  Country: US (occurrence: US)
  Receive Date: 20180731
  Receipt Date: 20180807
  Transmission Date: 20181010
  Serious: Yes (Other)
  Sender: FDA-Public Use
  Company Number: US-BAYER-2018-140506

PATIENT
  Age: 8 Year
  Sex: Male
  Weight: 35.83 kg

DRUGS (2)
  1. MIRALAX [Suspect]
     Active Substance: POLYETHYLENE GLYCOL 3350
     Indication: CONSTIPATION
     Dosage: 2 DF, UNK (AT BREAKFAST AND DINNER)
     Route: 048
     Dates: start: 201702, end: 20180713
  2. MULTIVITAMIN [Concomitant]
     Active Substance: VITAMINS

REACTIONS (10)
  - Agitation [Recovered/Resolved]
  - Intestinal obstruction [Unknown]
  - Abdominal discomfort [Unknown]
  - Anal incontinence [Unknown]
  - Mood altered [Unknown]
  - Jugular vein distension [Recovered/Resolved]
  - Drug ineffective [Unknown]
  - Aggression [Recovered/Resolved]
  - Limb discomfort [Recovered/Resolved]
  - Diarrhoea [None]

NARRATIVE: CASE EVENT DATE: 201702
